FAERS Safety Report 24889009 (Version 1)
Quarter: 2025Q1

REPORT INFORMATION
  Report Type: Spontaneous
  Country: US (occurrence: US)
  Receive Date: 20250127
  Receipt Date: 20250127
  Transmission Date: 20250408
  Serious: No
  Sender: RANBAXY
  Company Number: US-SUN PHARMACEUTICAL INDUSTRIES LTD-2024R1-435510

PATIENT
  Sex: Female

DRUGS (1)
  1. LEVULAN KERASTICK [Suspect]
     Active Substance: AMINOLEVULINIC ACID HYDROCHLORIDE
     Indication: Product used for unknown indication
     Route: 061

REACTIONS (7)
  - Blister [Unknown]
  - Dry skin [Unknown]
  - Erythema [Unknown]
  - Pain [Unknown]
  - Product administration error [Unknown]
  - Skin burning sensation [Unknown]
  - Skin exfoliation [Unknown]
